FAERS Safety Report 12101406 (Version 1)
Quarter: 2016Q1

REPORT INFORMATION
  Report Type: Spontaneous
  Country: JP (occurrence: JP)
  Receive Date: 20160222
  Receipt Date: 20160222
  Transmission Date: 20160526
  Serious: Yes (Hospitalization)
  Sender: FDA-Public Use
  Company Number: JP-PFIZER INC-2016040998

PATIENT
  Age: 62 Year
  Sex: Female

DRUGS (4)
  1. LEVODOPA/CARBIDOPA [Concomitant]
     Active Substance: CARBIDOPA\LEVODOPA
     Dosage: 300 MG, DAILY
  2. SELEGILINE [Concomitant]
     Active Substance: SELEGILINE
     Dosage: 5 MG, DAILY
  3. CABERGOLINE. [Suspect]
     Active Substance: CABERGOLINE
     Indication: PARKINSON^S DISEASE
     Dosage: 3 MG, DAILY
  4. PERGOLIDE [Suspect]
     Active Substance: PERGOLIDE
     Dosage: UNK

REACTIONS (2)
  - Posture abnormal [Recovered/Resolved]
  - Torticollis [Recovering/Resolving]

NARRATIVE: CASE EVENT DATE: 199905
